FAERS Safety Report 15385326 (Version 1)
Quarter: 2018Q4

REPORT INFORMATION
  Report Type: Other
  Country: FR (occurrence: FR)
  Receive Date: 20180914
  Receipt Date: 20180914
  Transmission Date: 20190204
  Serious: Yes (Death, Other)
  Sender: FDA-Public Use
  Company Number: FR-IPCA LABORATORIES LIMITED-IPC-2018-FR-001886

PATIENT

DRUGS (12)
  1. KARDEGIC [Suspect]
     Active Substance: ASPIRIN DL-LYSINE
     Indication: ISCHAEMIC HEART DISEASE PROPHYLAXIS
     Dosage: 160 MG, QD
     Route: 048
     Dates: start: 20180504, end: 20180816
  2. NORADRENALINE [Suspect]
     Active Substance: NOREPINEPHRINE
     Indication: SUPPORTIVE CARE
     Dosage: 100 MG, QD
     Route: 042
     Dates: start: 20180802, end: 20180817
  3. TRAMADOL HYDROCHLORIDE. [Suspect]
     Active Substance: TRAMADOL HYDROCHLORIDE
     Indication: PAIN
     Dosage: 100 MG, Q8H
     Route: 048
     Dates: start: 20180725, end: 20180816
  4. VANCOMYCINE [Suspect]
     Active Substance: VANCOMYCIN
     Indication: LUNG INFECTION
     Dosage: 2000 MG, QD
     Route: 042
     Dates: start: 20180730, end: 20180816
  5. ABSTRAL [Suspect]
     Active Substance: FENTANYL CITRATE
     Indication: PAIN
     Dosage: 100 ?G, BID
     Route: 060
     Dates: start: 20180730, end: 20180817
  6. NEURONTIN [Suspect]
     Active Substance: GABAPENTIN
     Indication: NEURALGIA
     Dosage: 100 MG, QD
     Route: 048
     Dates: start: 20180802, end: 20180816
  7. DEROXAT 20 MG [Suspect]
     Active Substance: PAROXETINE HYDROCHLORIDE
     Indication: DEPRESSION
     Dosage: 20 MG, QD
     Route: 048
     Dates: start: 20180618, end: 20180816
  8. ATARAX [Suspect]
     Active Substance: HYDROXYZINE HYDROCHLORIDE
     Indication: ANXIETY
     Dosage: 100 MG, QD
     Route: 042
     Dates: start: 20180730, end: 20180815
  9. FUMAFER 33 MG/1 G [Suspect]
     Active Substance: FERROUS FUMARATE
     Indication: IRON DEFICIENCY
     Dosage: 33 MG, QD
     Route: 048
     Dates: start: 20180717, end: 20180817
  10. TOBRAMYCINE [Suspect]
     Active Substance: TOBRAMYCIN SULFATE
     Indication: LUNG INFECTION
     Dosage: 450 MG, QD
     Route: 042
     Dates: start: 20180803, end: 20180813
  11. ZERBAXA [Suspect]
     Active Substance: CEFTOLOZANE SULFATE\TAZOBACTAM SODIUM
     Indication: LUNG INFECTION
     Dosage: 500 MG, Q8H
     Route: 042
     Dates: start: 20180804, end: 20180816
  12. COMPLEMENT ALIMENTAIRE [Suspect]
     Active Substance: DIETARY SUPPLEMENT
     Indication: STARVATION
     Dosage: 1 DF, QD
     Route: 048
     Dates: start: 20180717, end: 20180816

REACTIONS (2)
  - Encephalopathy [Fatal]
  - Renal failure [Fatal]

NARRATIVE: CASE EVENT DATE: 20180811
